FAERS Safety Report 17846836 (Version 1)
Quarter: 2020Q2

REPORT INFORMATION
  Report Type: Spontaneous
  Country: PL (occurrence: PL)
  Receive Date: 20200601
  Receipt Date: 20200601
  Transmission Date: 20200714
  Serious: Yes (Hospitalization)
  Sender: FDA-Public Use
  Company Number: PL-MYLANLABS-2020M1052942

PATIENT
  Age: 66 Year
  Sex: Female

DRUGS (12)
  1. OXYGEN. [Concomitant]
     Active Substance: OXYGEN
     Indication: SEVERE ACUTE RESPIRATORY SYNDROME
     Route: 065
     Dates: start: 202003
  2. RIBAVIRIN. [Suspect]
     Active Substance: RIBAVIRIN
     Indication: SEVERE ACUTE RESPIRATORY SYNDROME
     Dosage: 1000 MILLIGRAM, QD, 400MG + 600MG
     Route: 065
     Dates: start: 20200321, end: 20200324
  3. OXYGEN. [Concomitant]
     Active Substance: OXYGEN
     Indication: COVID-19 PNEUMONIA
  4. AMOXICILLIN/CLAVULANIC ACID [Concomitant]
     Active Substance: AMOXICILLIN\CLAVULANIC ACID
     Indication: SEVERE ACUTE RESPIRATORY SYNDROME
     Dosage: 1 GRAM, 12 HOUR
     Route: 048
     Dates: start: 202003
  5. AMOXICILLIN/CLAVULANIC ACID [Concomitant]
     Active Substance: AMOXICILLIN\CLAVULANIC ACID
     Indication: COVID-19 PNEUMONIA
  6. LOPINAVIR/RITONAVIR [Suspect]
     Active Substance: LOPINAVIR\RITONAVIR
     Indication: COVID-19 PNEUMONIA
  7. DROTAVERINE [Concomitant]
     Active Substance: DROTAVERINE
     Indication: SEVERE ACUTE RESPIRATORY SYNDROME
     Dosage: 40 MILLIGRAM, BID
     Route: 065
  8. RIBAVIRIN. [Suspect]
     Active Substance: RIBAVIRIN
     Indication: COVID-19 PNEUMONIA
  9. LOPINAVIR/RITONAVIR [Suspect]
     Active Substance: LOPINAVIR\RITONAVIR
     Indication: SEVERE ACUTE RESPIRATORY SYNDROME
     Dosage: 500 MILLIGRAM, BID
     Route: 065
     Dates: start: 20200321, end: 20200324
  10. AZITHROMYCIN ANHYDROUS. [Concomitant]
     Active Substance: AZITHROMYCIN ANHYDROUS
     Indication: SEVERE ACUTE RESPIRATORY SYNDROME
     Dosage: 500 MILLIGRAM, QD
     Route: 065
  11. DROTAVERINE [Concomitant]
     Active Substance: DROTAVERINE
     Indication: COVID-19 PNEUMONIA
  12. AZITHROMYCIN ANHYDROUS. [Concomitant]
     Active Substance: AZITHROMYCIN ANHYDROUS
     Indication: COVID-19 PNEUMONIA

REACTIONS (5)
  - Nausea [Recovered/Resolved]
  - Off label use [Unknown]
  - Abdominal pain [Recovered/Resolved]
  - Vomiting [Recovered/Resolved]
  - Diarrhoea [Recovered/Resolved]

NARRATIVE: CASE EVENT DATE: 202003
